FAERS Safety Report 9018001 (Version 1)
Quarter: 2013Q1

REPORT INFORMATION
  Report Type: Spontaneous
  Country: US (occurrence: None)
  Receive Date: 20130110
  Receipt Date: 20130110
  Transmission Date: 20140127
  Serious: Yes (Hospitalization)
  Sender: FDA-Public Use
  Company Number: None

PATIENT
  Age: 51 Year
  Sex: Female

DRUGS (3)
  1. PEGASYS PEN 180MCG ROCHE [Suspect]
     Indication: HEPATITIS C VIRUS TEST
     Dosage: 180 MCG ONCE A WEEK SUBCUTANEOUSLY
     Route: 058
     Dates: start: 20121113, end: 20121223
  2. RIBAVIRIN [Suspect]
     Indication: HEPATITIS C VIRUS TEST
     Dosage: 600 MG 2 TIMES A DAY BY MOUTH
     Route: 048
     Dates: start: 20121113, end: 20121223
  3. VICTRELIS [Concomitant]

REACTIONS (4)
  - Anaemia [None]
  - Fatigue [None]
  - Decreased appetite [None]
  - Pneumonia viral [None]
